FAERS Safety Report 8279065-5 (Version None)
Quarter: 2012Q2

REPORT INFORMATION
  Report Type: 
  Country: None (occurrence: None)
  Receive Date: 20120412
  Receipt Date: 20120331
  Transmission Date: 20120825
  Serious: Yes (Hospitalization)
  Sender: FDA-Public Use
  Company Number: PHHY2012DE029039

PATIENT
  Sex: Female
  Weight: 76 kg

DRUGS (17)
  1. RASILEZ [Suspect]
     Indication: HYPERTENSION
     Dosage: 1 DF, QD
     Route: 048
     Dates: start: 20081022
  2. DIGIMERCK [Suspect]
     Indication: CARDIAC FAILURE
  3. ACETYLSALICYLIC ACID SRT [Suspect]
     Dosage: 1 DF, QD
     Route: 048
     Dates: start: 20110927
  4. INSPRA [Suspect]
     Indication: CARDIAC FAILURE
     Dosage: 1 DF, QD
     Route: 048
     Dates: start: 20050704
  5. LEVOTHYROXINE SODIUM [Suspect]
     Indication: THYROID DISORDER
     Dosage: 1 DF, PER DAY
     Route: 048
     Dates: start: 20110927
  6. DIURETICS [Concomitant]
  7. TEGRETOL [Suspect]
     Indication: DEPRESSION
     Dosage: 2 DF, PER DAY
     Route: 048
     Dates: start: 20110927
  8. DIGIMERCK [Suspect]
     Indication: ATRIAL FIBRILLATION
     Dosage: 1 DF, QD
     Route: 048
     Dates: start: 20061214
  9. ACE INHIBITOR [Concomitant]
  10. HMG COA REDUCTASE INHIBITORS [Concomitant]
  11. VASODILATORS [Concomitant]
     Dates: end: 20090407
  12. CALCIUM CHANNEL BLOCKERS [Concomitant]
     Dates: end: 20100519
  13. NITRATES [Concomitant]
  14. METOPROLOL TARTRATE AND HYDROCHLOROTHIAZIDE [Suspect]
     Indication: HYPERTENSION
     Dosage: 0.5 DF, BID
     Route: 048
     Dates: start: 20070403
  15. DOGMATIL [Suspect]
     Indication: DEPRESSION
     Dosage: ?-0-? DF
     Route: 048
     Dates: start: 20080421
  16. METFORMIN HCL [Suspect]
     Indication: TYPE 2 DIABETES MELLITUS
     Dosage: 2 DF, QD
     Route: 048
     Dates: start: 20110823
  17. ANTIHYPERTENSIVES [Concomitant]
     Dates: end: 20090728

REACTIONS (3)
  - CEREBROVASCULAR ACCIDENT [None]
  - APHASIA [None]
  - THYROID DISORDER [None]
